FAERS Safety Report 9156605 (Version 1)
Quarter: 2013Q1

REPORT INFORMATION
  Report Type: Spontaneous
  Country: US (occurrence: None)
  Receive Date: 20130308
  Receipt Date: 20130308
  Transmission Date: 20140127
  Serious: Yes (Hospitalization)
  Sender: FDA-Public Use
  Company Number: None

PATIENT
  Sex: Female
  Weight: 83.18 kg

DRUGS (1)
  1. CISPLATIN [Suspect]

REACTIONS (8)
  - Decreased appetite [None]
  - Eating disorder [None]
  - Nausea [None]
  - Constipation [None]
  - Pelvic abscess [None]
  - Staphylococcal infection [None]
  - International normalised ratio increased [None]
  - Prothrombin time prolonged [None]
